FAERS Safety Report 4361987-9 (Version None)
Quarter: 2004Q2

REPORT INFORMATION
  Report Type: 
  Country: None (occurrence: None)
  Receive Date: 20040521
  Receipt Date: 20040211
  Transmission Date: 20050107
  Serious: No
  Sender: FDA-Public Use
  Company Number: US-GLAXOSMITHKLINE-A0497849A

PATIENT
  Sex: Female

DRUGS (2)
  1. WELLBUTRIN XL [Suspect]
     Indication: DEPRESSION
     Route: 048
  2. ZYBAN [Suspect]
     Route: 048
     Dates: start: 19990101

REACTIONS (3)
  - DISSOCIATION [None]
  - DIZZINESS [None]
  - INSOMNIA [None]
